FAERS Safety Report 11242217 (Version 2)
Quarter: 2015Q3

REPORT INFORMATION
  Report Type: Spontaneous
  Country: NL (occurrence: NL)
  Receive Date: 20150707
  Receipt Date: 20150709
  Transmission Date: 20151125
  Serious: Yes (Hospitalization)
  Sender: FDA-Public Use
  Company Number: NL-ROCHE-1601081

PATIENT
  Age: 77 Year
  Sex: Male

DRUGS (2)
  1. DIAZEPAM. [Suspect]
     Active Substance: DIAZEPAM
     Indication: CHRONIC OBSTRUCTIVE PULMONARY DISEASE
     Route: 048
  2. IPRATROPIUM BROMIDE. [Concomitant]
     Active Substance: IPRATROPIUM BROMIDE
     Dosage: BY AEROSOL FOUR TIMES DAILY
     Route: 065

REACTIONS (7)
  - Toxicity to various agents [Recovering/Resolving]
  - Mental impairment [Recovering/Resolving]
  - Decreased appetite [Recovering/Resolving]
  - Unresponsive to stimuli [Recovered/Resolved]
  - Activities of daily living impaired [Recovering/Resolving]
  - Urinary incontinence [Recovering/Resolving]
  - Chronic obstructive pulmonary disease [Recovering/Resolving]
